FAERS Safety Report 10542862 (Version 1)
Quarter: 2014Q4

REPORT INFORMATION
  Report Type: Spontaneous
  Country: US (occurrence: None)
  Receive Date: 20141023
  Receipt Date: 20141023
  Transmission Date: 20150529
  Serious: Yes (Other)
  Sender: FDA-Public Use
  Company Number: None

PATIENT
  Age: 55 Year
  Sex: Female
  Weight: 136 kg

DRUGS (7)
  1. FERRLECIT [Suspect]
     Active Substance: SODIUM FERRIC GLUCONATE COMPLEX
     Indication: ANAEMIA
     Dosage: 250 MG, ONCE (OVER 2 HOURS), INTRAVENOUS
     Route: 042
     Dates: start: 20141021, end: 20141021
  2. NEXIUM [Concomitant]
     Active Substance: ESOMEPRAZOLE MAGNESIUM
  3. VITAMIN D [Concomitant]
     Active Substance: CHOLECALCIFEROL
  4. LINZESS [Concomitant]
     Active Substance: LINACLOTIDE
  5. COUMADIN [Concomitant]
     Active Substance: WARFARIN SODIUM
  6. EFFEXOR [Concomitant]
     Active Substance: VENLAFAXINE HYDROCHLORIDE
  7. BENTYL [Concomitant]
     Active Substance: DICYCLOMINE HYDROCHLORIDE

REACTIONS (4)
  - Muscle spasms [None]
  - Urticaria [None]
  - Renal pain [None]
  - Abdominal pain [None]

NARRATIVE: CASE EVENT DATE: 20141021
